FAERS Safety Report 8416953-0 (Version None)
Quarter: 2012Q2

REPORT INFORMATION
  Report Type: 
  Country: None (occurrence: None)
  Receive Date: 20120606
  Receipt Date: 20120523
  Transmission Date: 20120825
  Serious: Yes (Other)
  Sender: FDA-Public Use
  Company Number: JP-PFIZER INC-2012073618

PATIENT
  Age: 77 Year
  Sex: Female

DRUGS (13)
  1. LIPITOR [Suspect]
     Indication: LIPID METABOLISM DISORDER
     Dosage: 20 MG, 1X/DAY
     Route: 048
     Dates: start: 20100926
  2. ALOGLIPTIN [Suspect]
     Dosage: [6.25, 12.5, OR 25 MG] OR PLACEBO (1 IN 1 D)
     Route: 048
     Dates: start: 20110302, end: 20110831
  3. CANDESARTAN CILEXETIL [Suspect]
     Indication: HYPERTENSION
     Dosage: 4 MG, 1X/DAY
     Route: 048
     Dates: start: 20101002, end: 20120405
  4. GLUCOBAY [Concomitant]
     Indication: TYPE 2 DIABETES MELLITUS
     Dosage: 100 MG, 3X/DAY
     Route: 048
     Dates: start: 20101002
  5. LANSOPRAZOLE [Suspect]
     Indication: GASTROINTESTINAL DISORDER
     Dosage: 15 MG, 1X/DAY
     Route: 048
     Dates: start: 20100926
  6. ALOGLIPTIN [Suspect]
     Indication: TYPE 2 DIABETES MELLITUS
     Dosage: [6.25, 12.5, OR 25 MG] OR PLACEBO (1 IN 1 D)
     Route: 048
     Dates: start: 20101126, end: 20101201
  7. ASPIRIN [Concomitant]
     Indication: THROMBOSIS PROPHYLAXIS
     Dosage: 100 MG, 1X/DAY
     Route: 048
     Dates: start: 20100926
  8. TORSEMIDE [Concomitant]
     Indication: ACUTE MYOCARDIAL INFARCTION
     Dosage: 8 MG, 1X/DAY
     Route: 048
     Dates: start: 20101002, end: 20110908
  9. NATEGLINIDE [Concomitant]
     Indication: TYPE 2 DIABETES MELLITUS
     Dosage: 60 MG, 3X/DAY
     Route: 048
     Dates: start: 20100928, end: 20110825
  10. MAGMITT [Concomitant]
     Indication: CONSTIPATION
     Dosage: 330 MG, 3X/DAY
     Route: 048
     Dates: start: 20101004
  11. PLAVIX [Suspect]
     Indication: THROMBOSIS PROPHYLAXIS
     Dosage: 75 MG, 1X/DAY
     Route: 048
     Dates: start: 20100926
  12. CARVEDILOL [Concomitant]
     Indication: HYPERTENSION
     Dosage: 2.5 MG, 1X/DAY
     Route: 048
     Dates: start: 20101005
  13. MERISLON [Concomitant]
     Indication: DIZZINESS
     Dosage: 6 MG, 3X/DAY
     Route: 048
     Dates: start: 20101029, end: 20110825

REACTIONS (1)
  - INTERSTITIAL LUNG DISEASE [None]
